FAERS Safety Report 20545103 (Version 1)
Quarter: 2022Q1

REPORT INFORMATION
  Report Type: Spontaneous
  Country: US (occurrence: US)
  Receive Date: 20220303
  Receipt Date: 20220303
  Transmission Date: 20220423
  Serious: No
  Sender: FDA-Public Use
  Company Number: US-ALLERGAN-2114113US

PATIENT
  Sex: Female

DRUGS (4)
  1. REFRESH CELLUVISC [Suspect]
     Active Substance: CARBOXYMETHYLCELLULOSE SODIUM
     Indication: Dry eye
     Dosage: AT NIGHT, RECAP THEM AND THEN USE IT AGAIN IN THE MORNING
  2. REFRESH CELLUVISC [Suspect]
     Active Substance: CARBOXYMETHYLCELLULOSE SODIUM
     Dosage: AT NIGHT, RECAP THEM AND THEN USE IT AGAIN IN THE MORNING
  3. RESTASIS [Suspect]
     Active Substance: CYCLOSPORINE
     Indication: Macular degeneration
     Dosage: UNK UNK, BID
  4. RESTASIS [Suspect]
     Active Substance: CYCLOSPORINE
     Indication: Corneal transplant

REACTIONS (5)
  - Multiple use of single-use product [Unknown]
  - Off label use [Unknown]
  - Eye irritation [Unknown]
  - Therapeutic response decreased [Unknown]
  - Product packaging issue [Unknown]
